FAERS Safety Report 8936607 (Version 3)
Quarter: 2013Q1

REPORT INFORMATION
  Report Type: Report from Study
  Country: FR (occurrence: FR)
  Receive Date: 20121130
  Receipt Date: 20130110
  Transmission Date: 20140127
  Serious: Yes (Hospitalization)
  Sender: FDA-Public Use
  Company Number: FR-ROCHE-1161289

PATIENT
  Age: 76 Year
  Sex: Male

DRUGS (27)
  1. RITUXIMAB [Suspect]
     Indication: CHRONIC LYMPHOCYTIC LEUKAEMIA
     Route: 041
     Dates: start: 20120416, end: 20120710
  2. RITUXIMAB [Suspect]
     Dosage: INTRAVENOUS DRIP
     Route: 042
     Dates: start: 20120710, end: 20120710
  3. FLUDARABINE [Suspect]
     Indication: PRODUCT USED FOR UNKNOWN INDICATION
     Route: 042
     Dates: start: 20120416, end: 20120710
  4. FLUDARABINE [Suspect]
     Dosage: FLUDARA 10 MG CPR., 60 MG ONCE A DAY
     Route: 042
     Dates: start: 201207, end: 20120714
  5. ENDOXAN [Suspect]
     Indication: PRODUCT USED FOR UNKNOWN INDICATION
     Route: 042
     Dates: start: 20120416, end: 20120710
  6. ENDOXAN [Suspect]
     Dosage: ENDOXAN 50 MG CPR., 400 MG ONCE A DAY
     Route: 042
     Dates: start: 201207, end: 20120714
  7. COLCHICINE [Suspect]
     Indication: GOUT
     Route: 048
     Dates: start: 20120710, end: 20120723
  8. DEPAKINE [Suspect]
     Indication: PRODUCT USED FOR UNKNOWN INDICATION
     Route: 065
     Dates: start: 1957
  9. TEGRETOL [Suspect]
     Indication: PRODUCT USED FOR UNKNOWN INDICATION
     Route: 065
     Dates: start: 1998, end: 20120925
  10. COLCHIMAX [Suspect]
     Indication: GOUT
     Route: 048
     Dates: start: 20120703, end: 20120709
  11. ROCEPHINE [Concomitant]
  12. VANCOMYCIN [Concomitant]
  13. TAZOCILLINE [Concomitant]
  14. GRANOCYTE [Concomitant]
  15. DANATROL [Concomitant]
  16. CYCLOSPORIN [Concomitant]
  17. KEPPRA [Concomitant]
  18. BACTRIM FORTE [Concomitant]
     Dosage: 400 MG (DCI1) ET 80 MG (DCI2)
     Route: 065
     Dates: start: 20120416, end: 20120924
  19. URBANYL [Concomitant]
     Route: 065
     Dates: start: 20120308
  20. MEDIATENSYL [Concomitant]
     Route: 065
     Dates: start: 1957
  21. ZANIDIP [Concomitant]
     Route: 065
     Dates: start: 1998, end: 20120925
  22. OLMETEC [Concomitant]
     Route: 065
     Dates: start: 1998, end: 20120925
  23. LERCAN [Concomitant]
     Route: 065
     Dates: start: 20120925
  24. FUROSEMIDE [Concomitant]
     Route: 065
     Dates: start: 1998, end: 20120925
  25. ETIOVEN [Concomitant]
     Route: 065
     Dates: start: 20120308, end: 20120925
  26. ZELITREX [Concomitant]
     Route: 065
     Dates: start: 20120416, end: 20120424
  27. SPECIAFOLDINE [Concomitant]
     Route: 065
     Dates: start: 20120416, end: 20120924

REACTIONS (5)
  - Bone marrow failure [Recovering/Resolving]
  - Pyrexia [Recovering/Resolving]
  - Anaemia [Not Recovered/Not Resolved]
  - Thrombocytopenia [Not Recovered/Not Resolved]
  - Neutropenia [Not Recovered/Not Resolved]
